FAERS Safety Report 9590360 (Version 1)
Quarter: 2013Q4

REPORT INFORMATION
  Report Type: Spontaneous
  Country: US (occurrence: US)
  Receive Date: 20131003
  Receipt Date: 20131003
  Transmission Date: 20140711
  Serious: No
  Sender: FDA-Public Use
  Company Number: US-AMGEN-USASP2012076947

PATIENT
  Age: 51 Year
  Sex: Male

DRUGS (10)
  1. ENBREL [Suspect]
     Indication: PSORIATIC ARTHROPATHY
     Dosage: 50 MG, QWK
     Route: 058
  2. SINGULAIR [Concomitant]
     Dosage: 10 MG, UNK
     Route: 048
  3. AMLODIPINE [Concomitant]
     Dosage: 10 MG, UNK
     Route: 048
  4. LIPITOR [Concomitant]
     Dosage: 20 MG, UNK
     Route: 048
  5. VICODIN [Concomitant]
     Dosage: 5-500
     Route: 048
  6. DIOVAN [Concomitant]
     Dosage: 160 MG, UNK
     Route: 048
  7. CARVEDILOL [Concomitant]
     Dosage: 12.5 MG, UNK
     Route: 048
  8. MULTI TABS ACD [Concomitant]
     Route: 048
  9. BABY ASPIRIN [Concomitant]
     Dosage: 81 MG, UNK
     Route: 048
  10. HYDROCHLOROTHIAZIDE WITH TRIAMTERENE [Concomitant]
     Dosage: 25-50 MG
     Route: 048

REACTIONS (1)
  - Upper respiratory tract infection [Unknown]
